FAERS Safety Report 16010135 (Version 6)
Quarter: 2019Q1

REPORT INFORMATION
  Report Type: Report from Study
  Country: AU (occurrence: AU)
  Receive Date: 20190225
  Receipt Date: 20190328
  Transmission Date: 20190418
  Serious: Yes (Hospitalization)
  Sender: FDA-Public Use
  Company Number: AU-ROCHE-2269943

PATIENT
  Age: 74 Year
  Sex: Male
  Weight: 87 kg

DRUGS (17)
  1. ATEZOLIZUMAB. [Suspect]
     Active Substance: ATEZOLIZUMAB
     Indication: MALIGNANT MELANOMA
     Dosage: DAYS 1 AND 15 OF EACH 28-DAY CYCLE?DATE OF MOST RECENT DOSE OF ATEZOLIZUMAB 840 MG PRIOR TO AE/SAE O
     Route: 042
     Dates: start: 20181123
  2. PLAVIX [Concomitant]
     Active Substance: CLOPIDOGREL BISULFATE
     Indication: ISCHAEMIC STROKE
     Route: 048
     Dates: start: 201804
  3. PANTOPRAZOLE [Concomitant]
     Active Substance: PANTOPRAZOLE
     Route: 048
     Dates: start: 201806
  4. PANADOL [Concomitant]
     Active Substance: ACETAMINOPHEN
     Indication: OSTEOARTHRITIS
     Route: 048
     Dates: start: 2005
  5. PREDNISONE. [Concomitant]
     Active Substance: PREDNISONE
     Indication: DIZZINESS
     Route: 065
     Dates: start: 20190220
  6. CETIRIZINE [Concomitant]
     Active Substance: CETIRIZINE HYDROCHLORIDE
     Indication: RASH PRURITIC
     Route: 048
     Dates: start: 20181221
  7. FERINJECT [Concomitant]
     Active Substance: FERRIC CARBOXYMALTOSE
     Indication: HAEMOGLOBIN DECREASED
     Route: 042
     Dates: start: 20190215, end: 20190215
  8. AVAPRO [Concomitant]
     Active Substance: IRBESARTAN
     Indication: HYPERTENSION
     Route: 048
     Dates: start: 2003
  9. PREDNISONE. [Concomitant]
     Active Substance: PREDNISONE
     Indication: FALL
     Route: 048
     Dates: start: 20190119, end: 20190209
  10. PREDNISONE. [Concomitant]
     Active Substance: PREDNISONE
     Route: 048
     Dates: start: 20190214
  11. COBIMETINIB. [Suspect]
     Active Substance: COBIMETINIB
     Indication: MALIGNANT MELANOMA
     Dosage: DAYS 1-21 OF EACH 28-DAY CYCLE?DATE OF MOST RECENT DOSE OF COBIMETINIB 60 MG PRIOR TO AE/SAE ONSET 1
     Route: 048
     Dates: start: 20181123
  12. PREDNISONE. [Concomitant]
     Active Substance: PREDNISONE
     Indication: DRUG-INDUCED LIVER INJURY
     Route: 048
     Dates: start: 20181105
  13. DOXYCYCLINE. [Concomitant]
     Active Substance: DOXYCYCLINE
     Indication: DERMATITIS ACNEIFORM
     Route: 048
     Dates: start: 20181206
  14. ELOCON [Concomitant]
     Active Substance: MOMETASONE FUROATE
     Indication: DERMATITIS ACNEIFORM
     Dosage: 1 OTHER
     Route: 061
     Dates: start: 20181206
  15. TRICORTONE [Concomitant]
     Indication: RASH PRURITIC
     Dosage: 1 OTHER
     Route: 061
     Dates: start: 20181221
  16. LIPITOR [Concomitant]
     Active Substance: ATORVASTATIN CALCIUM
     Indication: HYPERCHOLESTEROLAEMIA
     Route: 048
     Dates: start: 2003
  17. PREDNISONE. [Concomitant]
     Active Substance: PREDNISONE
     Indication: VOMITING
     Route: 048
     Dates: start: 20190210, end: 20190213

REACTIONS (1)
  - Myocarditis [Not Recovered/Not Resolved]

NARRATIVE: CASE EVENT DATE: 20190219
